FAERS Safety Report 15738861 (Version 1)
Quarter: 2018Q4

REPORT INFORMATION
  Report Type: Report from Study
  Country: DE (occurrence: DE)
  Receive Date: 20181219
  Receipt Date: 20181219
  Transmission Date: 20190205
  Serious: Yes (Other)
  Sender: FDA-Public Use
  Company Number: DE-BAXTER-2018BAX030349

PATIENT
  Age: 80 Year
  Sex: Female
  Weight: 69 kg

DRUGS (36)
  1. PREDNISONE. [Suspect]
     Active Substance: PREDNISONE
     Indication: PRODUCT USED FOR UNKNOWN INDICATION
     Dosage: 500 MG, UNK
     Route: 048
     Dates: start: 20181114, end: 20181118
  2. RIXIMYO [Suspect]
     Active Substance: RITUXIMAB
     Dosage: 656 MG, (INFUSION RATE 2.3 ML/MIN FROM 13:50 TO 17:30)
     Route: 041
     Dates: start: 20180917, end: 20180917
  3. TAVOR [Concomitant]
     Indication: PRODUCT USED FOR UNKNOWN INDICATION
     Dosage: 0.5 OT, UNK
     Route: 048
     Dates: start: 2008
  4. PREDNISOLON [Concomitant]
     Active Substance: PREDNISOLONE
     Indication: PRODUCT USED FOR UNKNOWN INDICATION
     Dosage: UNK
     Route: 048
     Dates: start: 20180917
  5. ONDANSETRON [Concomitant]
     Active Substance: ONDANSETRON
     Indication: PRODUCT USED FOR UNKNOWN INDICATION
     Dosage: 8 MG, UNK
     Route: 042
     Dates: start: 20180917
  6. COTRIM FORTE [Concomitant]
     Active Substance: SULFAMETHOXAZOLE\TRIMETHOPRIM
     Indication: PRODUCT USED FOR UNKNOWN INDICATION
     Dosage: UNK
     Route: 048
     Dates: start: 20180917
  7. ENDOXAN 1G [Suspect]
     Active Substance: CYCLOPHOSPHAMIDE
     Dosage: 1305 MG, (INFUSION RATE 8.3 ML/MIN FROM 19:00 TO 20:00)
     Route: 041
     Dates: start: 20181114, end: 20181114
  8. PANTOPRAZOL [Concomitant]
     Active Substance: PANTOPRAZOLE SODIUM
     Indication: PROPHYLAXIS
     Dosage: 20 MG, UNK
     Route: 048
     Dates: start: 2008
  9. ENDOXAN 1G [Suspect]
     Active Substance: CYCLOPHOSPHAMIDE
     Indication: DIFFUSE LARGE B-CELL LYMPHOMA
     Dosage: 1312 MG, (INFUSION RATE 8.3 ML/MIN FROM 09:10 TO 10:10)
     Route: 041
     Dates: start: 20181016, end: 20181016
  10. RIXIMYO [Suspect]
     Active Substance: RITUXIMAB
     Dosage: 656 MG, (INFUSION RATE 5.5 ML/MIN FROM 10:15 TO 11:45)
     Route: 041
     Dates: start: 20181002, end: 20181002
  11. RIXIMYO [Suspect]
     Active Substance: RITUXIMAB
     Dosage: 656 MG, (INFUSION RATE 5.5 ML/MIN FROM 10:20 TO 11:50)
     Route: 041
     Dates: start: 20181016, end: 20181016
  12. DOXORUBICIN [Suspect]
     Active Substance: DOXORUBICIN
     Dosage: 87 MG, (INFUSION RATE 10 ML/MIN FROM 13:10 TO 13:20)
     Route: 041
     Dates: start: 20180918, end: 20180918
  13. SIMVASTATIN. [Concomitant]
     Active Substance: SIMVASTATIN
     Indication: PRODUCT USED FOR UNKNOWN INDICATION
     Dosage: UNK
     Route: 048
  14. ENDOXAN 1G [Suspect]
     Active Substance: CYCLOPHOSPHAMIDE
     Indication: PRODUCT USED FOR UNKNOWN INDICATION
     Dosage: 1312 MG, (INFUSION RATE 8.3 ML/MIN FROM 12:00 TO 13:00)
     Route: 041
     Dates: start: 20181030, end: 20181030
  15. PREDNISONE. [Suspect]
     Active Substance: PREDNISONE
     Dosage: 500 MG, UNK
     Route: 048
     Dates: start: 20181002, end: 20181006
  16. PREDNISONE. [Suspect]
     Active Substance: PREDNISONE
     Dosage: 500 MG, UNK
     Route: 048
     Dates: start: 20181030, end: 20181103
  17. RIXIMYO [Suspect]
     Active Substance: RITUXIMAB
     Indication: PRODUCT USED FOR UNKNOWN INDICATION
     Dosage: 653 MG, (INFUSION RATE 2.5 ML/MIN FROM 15:20 TO 17:50)
     Route: 041
     Dates: start: 20181114, end: 20181114
  18. VINCRISTINE [Suspect]
     Active Substance: VINCRISTINE
     Indication: PRODUCT USED FOR UNKNOWN INDICATION
     Dosage: 1 MG, (INFUSION RATE 0.2 ML/MIN FROM 13:05 TO 13:15)
     Route: 041
     Dates: start: 20181016, end: 20181016
  19. VINCRISTINE [Suspect]
     Active Substance: VINCRISTINE
     Indication: DIFFUSE LARGE B-CELL LYMPHOMA
     Dosage: 1 MG, (INFUSION RATE 20 ML/MIN FROM 13:25 TO 13:30)
     Route: 041
     Dates: start: 20180918, end: 20180918
  20. DOXORUBICIN [Suspect]
     Active Substance: DOXORUBICIN
     Indication: PRODUCT USED FOR UNKNOWN INDICATION
     Dosage: 87 MG,  (INFUSION RATE 10 ML/MIN FROM 20:20 TO 20:30)
     Route: 041
     Dates: start: 20181114, end: 20181114
  21. DECORTIN [Concomitant]
     Active Substance: PREDNISONE
     Indication: PRODUCT USED FOR UNKNOWN INDICATION
     Dosage: UNK
     Route: 048
     Dates: start: 20180917
  22. NEULASTA [Concomitant]
     Active Substance: PEGFILGRASTIM
     Indication: PRODUCT USED FOR UNKNOWN INDICATION
     Dosage: UNK
     Route: 023
     Dates: start: 20180917
  23. CIPROFLOXACIN. [Concomitant]
     Active Substance: CIPROFLOXACIN
     Indication: PRODUCT USED FOR UNKNOWN INDICATION
     Dosage: UNK
     Route: 048
     Dates: start: 20180917
  24. ENDOXAN 1G [Suspect]
     Active Substance: CYCLOPHOSPHAMIDE
     Dosage: 1312 MG, (INFUSION RATE 8 ML/MIN FROM 13:40 TO 14:40)
     Route: 041
     Dates: start: 20180918, end: 20180918
  25. VINCRISTINE [Suspect]
     Active Substance: VINCRISTINE
     Dosage: 1 MG, (INFUSION RATE 0.2 ML/MIN FROM 13:25 TO 13:30)
     Route: 041
     Dates: start: 20181002, end: 20181002
  26. PREDNISONE. [Suspect]
     Active Substance: PREDNISONE
     Indication: DIFFUSE LARGE B-CELL LYMPHOMA
     Dosage: 500 MG, UNK
     Route: 048
     Dates: start: 20181016, end: 20181020
  27. PREDNISONE. [Suspect]
     Active Substance: PREDNISONE
     Dosage: 1000 MG, UNK
     Route: 048
     Dates: start: 20180912, end: 20180916
  28. RIXIMYO [Suspect]
     Active Substance: RITUXIMAB
     Indication: DIFFUSE LARGE B-CELL LYMPHOMA
     Dosage: 656 MG, (INFUSION RATE 4.1 ML/MIN FROM 09:20 TO 11:00)
     Route: 041
     Dates: start: 20181030, end: 20181030
  29. DOXORUBICIN [Suspect]
     Active Substance: DOXORUBICIN
     Indication: DIFFUSE LARGE B-CELL LYMPHOMA
     Dosage: 87.5 MG,  (INFUSION RATE 09 ML/MIN FROM 12:50 TO 13:00)
     Route: 041
     Dates: start: 20181016, end: 20181016
  30. DOXORUBICIN [Suspect]
     Active Substance: DOXORUBICIN
     Dosage: 87.5 MG, (INFUSION RATE 10 ML/MIN FROM 13:10 TO 13:20)
     Route: 041
     Dates: start: 20181002, end: 20181002
  31. DOXORUBICIN [Suspect]
     Active Substance: DOXORUBICIN
     Dosage: 87.5 MG,  (INFUSION RATE 10 ML/MIN FROM 13:25 TO 13:35)
     Route: 041
     Dates: start: 20181030, end: 20181030
  32. ENDOXAN 1G [Suspect]
     Active Substance: CYCLOPHOSPHAMIDE
     Dosage: 1312 MG, (INFUSION RATE 8.3 ML/MIN FROM 09:10 TO 10:10)
     Route: 041
     Dates: start: 20181002, end: 20181002
  33. VINCRISTINE [Suspect]
     Active Substance: VINCRISTINE
     Dosage: 1 MG, (INFUSION RATE 0.2 ML/MIN FROM 20:30 TO 20:35)
     Route: 041
     Dates: start: 20181114, end: 20181114
  34. VINCRISTINE [Suspect]
     Active Substance: VINCRISTINE
     Dosage: 1 MG, (INFUSION RATE 0.2 ML/MIN FROM 13:25 TO 13:30)
     Route: 041
     Dates: start: 20181030, end: 20181030
  35. UROMITEXAN [Concomitant]
     Active Substance: MESNA
     Indication: PRODUCT USED FOR UNKNOWN INDICATION
     Dosage: 260 MG, UNK
     Route: 042
     Dates: start: 20180917
  36. ACICLOVIR [Concomitant]
     Active Substance: ACYCLOVIR
     Indication: PRODUCT USED FOR UNKNOWN INDICATION
     Dosage: UNK
     Route: 048
     Dates: start: 20180917

REACTIONS (10)
  - Pancytopenia [Recovered/Resolved]
  - Pancytopenia [Unknown]
  - Hyperhidrosis [Unknown]
  - Muscle spasms [Recovered/Resolved]
  - Dysphagia [Recovered/Resolved]
  - Rash [Recovered/Resolved]
  - Dizziness [Unknown]
  - Circulatory collapse [Recovered/Resolved]
  - Oropharyngeal pain [Recovered/Resolved]
  - Dry mouth [Recovered/Resolved]

NARRATIVE: CASE EVENT DATE: 20180927
